FAERS Safety Report 14701662 (Version 2)
Quarter: 2018Q2

REPORT INFORMATION
  Report Type: Spontaneous
  Country: US (occurrence: US)
  Receive Date: 20180331
  Receipt Date: 20180604
  Transmission Date: 20180711
  Serious: Yes (Other)
  Sender: FDA-Public Use
  Company Number: US-JNJFOC-20180325649

PATIENT
  Age: 71 Year
  Sex: Female
  Weight: 63 kg

DRUGS (12)
  1. IMBRUVICA [Suspect]
     Active Substance: IBRUTINIB
     Indication: NON-HODGKIN^S LYMPHOMA
     Dosage: 560 MG, QD
     Route: 048
     Dates: start: 2018, end: 201803
  2. IMBRUVICA [Suspect]
     Active Substance: IBRUTINIB
     Indication: CENTRAL NERVOUS SYSTEM LYMPHOMA
     Dosage: 280 MG, QD
     Route: 048
     Dates: start: 20180321
  3. IMBRUVICA [Suspect]
     Active Substance: IBRUTINIB
     Indication: CENTRAL NERVOUS SYSTEM LYMPHOMA
     Dosage: 560 MG, QD
     Route: 048
     Dates: start: 2018, end: 201803
  4. CELEXA [Concomitant]
     Active Substance: CITALOPRAM HYDROBROMIDE
     Indication: DEPRESSION
     Dosage: 20 MG, QD
     Route: 048
     Dates: start: 20171227
  5. CELEXA [Concomitant]
     Active Substance: CITALOPRAM HYDROBROMIDE
     Indication: ANXIETY
     Dosage: 20 MG, QD
     Route: 048
     Dates: start: 20171227
  6. DECADRON [Concomitant]
     Active Substance: DEXAMETHASONE
     Indication: BRAIN OEDEMA
     Dosage: 2 MG, QD
     Route: 048
     Dates: start: 20180130
  7. IMBRUVICA [Suspect]
     Active Substance: IBRUTINIB
     Indication: NON-HODGKIN^S LYMPHOMA
     Dosage: 560 MG, QD
     Route: 048
     Dates: start: 20180111, end: 20180227
  8. TYLENOL [Suspect]
     Active Substance: ACETAMINOPHEN
     Route: 065
  9. TYLENOL [Suspect]
     Active Substance: ACETAMINOPHEN
     Indication: PRODUCT USED FOR UNKNOWN INDICATION
     Route: 065
  10. IMBRUVICA [Suspect]
     Active Substance: IBRUTINIB
     Indication: CENTRAL NERVOUS SYSTEM LYMPHOMA
     Dosage: 560 MG, QD
     Route: 048
     Dates: start: 20180111, end: 20180227
  11. IMBRUVICA [Suspect]
     Active Substance: IBRUTINIB
     Indication: NON-HODGKIN^S LYMPHOMA
     Dosage: 280 MG, QD
     Route: 048
     Dates: start: 20180321
  12. PRILOSEC [Concomitant]
     Active Substance: OMEPRAZOLE MAGNESIUM
     Indication: PROPHYLAXIS
     Dosage: 20 MG, QD
     Route: 048

REACTIONS (4)
  - Hepatotoxicity [Recovered/Resolved]
  - Product use in unapproved indication [Unknown]
  - Hepatic steatosis [Unknown]
  - Off label use [Unknown]

NARRATIVE: CASE EVENT DATE: 20180111
